FAERS Safety Report 20990031 (Version 1)
Quarter: 2022Q2

REPORT INFORMATION
  Report Type: Spontaneous
  Country: US (occurrence: None)
  Receive Date: 20220621
  Receipt Date: 20220621
  Transmission Date: 20220721
  Serious: Yes (Hospitalization)
  Sender: FDA-Public Use
  Company Number: 2022A225276

PATIENT
  Sex: Female

DRUGS (1)
  1. TEZSPIRE [Suspect]
     Active Substance: TEZEPELUMAB-EKKO
     Indication: Asthma
     Dosage: 210ML/KG EVERY FOUR WEEKS
     Route: 058
     Dates: end: 20220411

REACTIONS (3)
  - Respiratory failure [Unknown]
  - Illness [Unknown]
  - Immunodeficiency [Unknown]
